FAERS Safety Report 6912523-1 (Version None)
Quarter: 2010Q3

REPORT INFORMATION
  Report Type: 
  Country: None (occurrence: None)
  Receive Date: 20100806
  Receipt Date: 20080711
  Transmission Date: 20110219
  Serious: No
  Sender: FDA-Public Use
  Company Number: US-PFIZER INC-2008060189

PATIENT
  Sex: Female

DRUGS (4)
  1. DETROL LA [Suspect]
     Indication: INCONTINENCE
     Dates: start: 20080708
  2. SYNTHROID [Concomitant]
  3. MICARDIS [Concomitant]
  4. SIMVASTATIN [Concomitant]

REACTIONS (3)
  - DIZZINESS [None]
  - NAUSEA [None]
  - VISION BLURRED [None]
